FAERS Safety Report 5067212-8 (Version None)
Quarter: 2006Q3

REPORT INFORMATION
  Report Type: 
  Country: None (occurrence: None)
  Receive Date: 20060727
  Receipt Date: 20060620
  Transmission Date: 20061208
  Serious: Yes (Disabling)
  Sender: FDA-Public Use
  Company Number: S06-UKI-02901-01

PATIENT
  Age: 46 Year
  Sex: Female

DRUGS (7)
  1. ESCITALOPRAM [Suspect]
     Indication: ANXIETY DISORDER
     Dosage: 10 MG QD PO
     Route: 048
     Dates: start: 20060428, end: 20060517
  2. ESCITALOPRAM [Suspect]
     Indication: DEPRESSION
     Dosage: 10 MG QD PO
     Route: 048
     Dates: start: 20060428, end: 20060517
  3. ESCITALOPRAM [Suspect]
     Indication: STRESS AT WORK
     Dosage: 10 MG QD PO
     Route: 048
     Dates: start: 20060428, end: 20060517
  4. ESCITALOPRAM [Suspect]
     Indication: ANXIETY DISORDER
     Dosage: 5 MG QD PO
     Route: 048
     Dates: start: 20060517, end: 20060612
  5. ESCITALOPRAM [Suspect]
     Indication: DEPRESSION
     Dosage: 5 MG QD PO
     Route: 048
     Dates: start: 20060517, end: 20060612
  6. ESCITALOPRAM [Suspect]
     Indication: STRESS AT WORK
     Dosage: 5 MG QD PO
     Route: 048
     Dates: start: 20060517, end: 20060612
  7. STILNOCT (ZOLPIDEM TARTRATE) [Suspect]

REACTIONS (8)
  - ANOREXIA [None]
  - DEHYDRATION [None]
  - DISSOCIATION [None]
  - LIVER FUNCTION TEST ABNORMAL [None]
  - NAUSEA [None]
  - POLYDIPSIA [None]
  - TREMOR [None]
  - WEIGHT DECREASED [None]
